FAERS Safety Report 26126215 (Version 1)
Quarter: 2025Q4

REPORT INFORMATION
  Report Type: Spontaneous
  Country: EU (occurrence: EU)
  Receive Date: 20251205
  Receipt Date: 20251205
  Transmission Date: 20260117
  Serious: Yes (Other)
  Sender: HIKMA
  Company Number: None

PATIENT
  Age: 27 Year
  Sex: Male
  Weight: 75 kg

DRUGS (6)
  1. TIGECYCLINE [Suspect]
     Active Substance: TIGECYCLINE
     Indication: Wound infection
     Dosage: 2 DOSAGE FORM, BID (2-0-2)
     Route: 042
     Dates: start: 20251022, end: 20251104
  2. LEVOFLOXACIN [Concomitant]
     Active Substance: LEVOFLOXACIN
     Indication: Wound infection
     Dosage: 1 DOSAGE FORM, BID (1-0-1)
     Route: 042
     Dates: start: 20251022, end: 20251104
  3. MEROPENEM [Concomitant]
     Active Substance: MEROPENEM
     Indication: Wound infection
     Dosage: 1 DOSAGE FORM, Q8H (1-1-1)
     Route: 042
     Dates: start: 20251023
  4. METAMIZOLE [Concomitant]
     Active Substance: METAMIZOLE
     Indication: Product used for unknown indication
     Dosage: UNK
     Route: 048
     Dates: start: 20251031
  5. PANTOPRAZOL AB [Concomitant]
     Indication: Product used for unknown indication
     Dosage: 1 DOSAGE FORM, QD (1-0-0)
     Route: 048
     Dates: start: 20251016
  6. NALOXONE HYDROCHLORIDE\OXYCODONE HYDROCHLORIDE [Concomitant]
     Active Substance: NALOXONE HYDROCHLORIDE\OXYCODONE HYDROCHLORIDE
     Indication: Product used for unknown indication
     Dosage: 1 DOSAGE FORM, BID (1-0-1)
     Route: 048
     Dates: start: 20251031

REACTIONS (1)
  - Pancreatitis [Not Recovered/Not Resolved]

NARRATIVE: CASE EVENT DATE: 20251025
